FAERS Safety Report 20480581 (Version 1)
Quarter: 2022Q1

REPORT INFORMATION
  Report Type: Spontaneous
  Country: US (occurrence: US)
  Receive Date: 20220216
  Receipt Date: 20220216
  Transmission Date: 20220424
  Serious: Yes (Hospitalization)
  Sender: FDA-Public Use
  Company Number: US-GW PHARMA-202112USGW06442

PATIENT
  Sex: Male

DRUGS (4)
  1. EPIDIOLEX [Suspect]
     Active Substance: CANNABIDIOL
     Indication: Epilepsy
     Dosage: 20 MILLIGRAM, BID
     Route: 048
     Dates: start: 2021, end: 2021
  2. EPIDIOLEX [Suspect]
     Active Substance: CANNABIDIOL
     Dosage: 40 MILLIGRAM, BID
     Route: 048
     Dates: start: 2021, end: 2021
  3. EPIDIOLEX [Suspect]
     Active Substance: CANNABIDIOL
     Dosage: 60 MILLIGRAM, BID
     Route: 048
     Dates: start: 2021, end: 2021
  4. EPIDIOLEX [Suspect]
     Active Substance: CANNABIDIOL
     Dosage: 80 MILLIGRAM, BID
     Route: 048
     Dates: start: 2021

REACTIONS (3)
  - Seizure [Unknown]
  - Pneumonia [Unknown]
  - Product administered to patient of inappropriate age [Unknown]

NARRATIVE: CASE EVENT DATE: 20210101
